FAERS Safety Report 12705952 (Version 2)
Quarter: 2016Q3

REPORT INFORMATION
  Report Type: Spontaneous
  Country: US (occurrence: US)
  Receive Date: 20160901
  Receipt Date: 20160930
  Transmission Date: 20161109
  Serious: No
  Sender: FDA-Public Use
  Company Number: US-ASTRAZENECA-2016SE84436

PATIENT
  Sex: Female
  Weight: 89.8 kg

DRUGS (11)
  1. FLONASE [Concomitant]
     Active Substance: FLUTICASONE PROPIONATE
     Indication: MULTIPLE ALLERGIES
     Dosage: 50 MCG  2 SPRAYS EACH NOSTRIL EVERY DAY
     Route: 045
  2. LORAZEPAM. [Concomitant]
     Active Substance: LORAZEPAM
     Indication: ANXIETY
     Dosage: 1 MG 4 TIMES A DAY AS NEEDED
     Route: 048
  3. ZYPREXA [Concomitant]
     Active Substance: OLANZAPINE
     Indication: SLEEP DISORDER
     Route: 048
  4. GEMFIBROZIL. [Concomitant]
     Active Substance: GEMFIBROZIL
     Indication: BLOOD CHOLESTEROL INCREASED
     Dosage: 600 MG TWICE A DAY
     Route: 048
  5. MONTELUKAST [Concomitant]
     Active Substance: MONTELUKAST SODIUM
     Indication: MULTIPLE ALLERGIES
     Route: 048
  6. RANITIDINE. [Concomitant]
     Active Substance: RANITIDINE
     Indication: GASTROOESOPHAGEAL REFLUX DISEASE
     Dosage: 300 MG TWICE A DAY
     Route: 048
  7. SYMBICORT [Suspect]
     Active Substance: BUDESONIDE\FORMOTEROL FUMARATE DIHYDRATE
     Indication: ASTHMA
     Dosage: 160/4.5 MCG 2 PUFFS TWICE A DAY
     Route: 055
     Dates: start: 20160602
  8. MECLIZINE [Concomitant]
     Active Substance: MECLIZINE HYDROCHLORIDE
     Indication: DIZZINESS
     Dosage: 12.5 MG 1 TO 2 TABS BY MOUTH AS NEEDED
     Route: 048
  9. EFFEXOR [Concomitant]
     Active Substance: VENLAFAXINE HYDROCHLORIDE
     Indication: DEPRESSION
     Route: 048
  10. TRAMADOL. [Concomitant]
     Active Substance: TRAMADOL
     Indication: BACK PAIN
     Dosage: 50 MG EVERY 6 HRS AS  NEEDED
     Route: 048
  11. SYMBICORT [Suspect]
     Active Substance: BUDESONIDE\FORMOTEROL FUMARATE DIHYDRATE
     Indication: DYSPNOEA
     Dosage: 160/4.5 MCG 2 PUFFS TWICE A DAY
     Route: 055
     Dates: start: 20160602

REACTIONS (7)
  - Device malfunction [Unknown]
  - Arthralgia [Unknown]
  - Intervertebral disc degeneration [Unknown]
  - Cough [Unknown]
  - Oropharyngeal pain [Unknown]
  - Feeling abnormal [Unknown]
  - Dysphonia [Unknown]
